FAERS Safety Report 5117829-7 (Version None)
Quarter: 2006Q3

REPORT INFORMATION
  Report Type: 
  Country: None (occurrence: None)
  Receive Date: 20060926
  Receipt Date: 20060905
  Transmission Date: 20061208
  Serious: No
  Sender: FDA-Public Use
  Company Number: MX200607004972

PATIENT
  Age: 40 Year
  Sex: Male

DRUGS (8)
  1. OLANZAPINE + FLUOXETINE HCL [Suspect]
     Indication: MAJOR DEPRESSION
  2. ZYPREXA [Suspect]
     Dosage: 5 UNK
  3. PROZAC [Suspect]
     Indication: MAJOR DEPRESSION
     Dosage: SEE IMAGE
  4. AMITRIPTYLINE HCL [Concomitant]
  5. EFFEXOR [Concomitant]
  6. LEXOTAN (BROMAZEPAM) [Concomitant]
  7. CLONAZEPAM [Concomitant]
  8. SERTRALINE [Concomitant]

REACTIONS (10)
  - ANXIETY [None]
  - ARTHRALGIA [None]
  - BLOOD TESTOSTERONE DECREASED [None]
  - DRUG INEFFECTIVE [None]
  - FEAR [None]
  - GENERALISED OEDEMA [None]
  - HAEMORRHOIDAL HAEMORRHAGE [None]
  - MYALGIA [None]
  - PARANOIA [None]
  - WEIGHT INCREASED [None]
